FAERS Safety Report 5021348-6 (Version None)
Quarter: 2006Q2

REPORT INFORMATION
  Report Type: 
  Country: None (occurrence: None)
  Receive Date: 20060608
  Receipt Date: 20050822
  Transmission Date: 20061013
  Serious: No
  Sender: FDA-Public Use
  Company Number: US-BRISTOL-MYERS SQUIBB COMPANY-13146790

PATIENT
  Age: 64 Year
  Sex: Female
  Weight: 63 kg

DRUGS (11)
  1. SINEMET [Suspect]
     Indication: RESTLESS LEGS SYNDROME
     Dosage: 25-100 MG, INCREASED TO TWO PILLS TWICE DAILY
     Route: 048
     Dates: start: 20030813
  2. TOPROL-XL [Concomitant]
  3. PRAVACHOL [Concomitant]
  4. PLAVIX [Concomitant]
  5. EFFEXOR XR [Concomitant]
  6. HYDRODIURIL [Concomitant]
  7. DIOVAN [Concomitant]
  8. PREVACID [Concomitant]
  9. VIOXX [Concomitant]
  10. ASPIRIN [Concomitant]
  11. CALCIUM + VITAMIN D [Concomitant]

REACTIONS (1)
  - DRUG INEFFECTIVE [None]
